FAERS Safety Report 4594200-8 (Version None)
Quarter: 2005Q1

REPORT INFORMATION
  Report Type: 
  Country: None (occurrence: None)
  Receive Date: 20050301
  Receipt Date: 20040621
  Transmission Date: 20050727
  Serious: No
  Sender: FDA-Public Use
  Company Number: US-GLAXOSMITHKLINE-A0515394A

PATIENT
  Age: 28 Year
  Sex: Female

DRUGS (1)
  1. VALTREX [Suspect]
     Dosage: 500MG PER DAY
     Route: 048
     Dates: start: 20030530, end: 20040601

REACTIONS (2)
  - DRUG EXPOSURE DURING PREGNANCY [None]
  - HERPES VIRUS INFECTION [None]
